FAERS Safety Report 18913060 (Version 1)
Quarter: 2021Q1

REPORT INFORMATION
  Report Type: Spontaneous
  Country: DE (occurrence: DE)
  Receive Date: 20210219
  Receipt Date: 20210219
  Transmission Date: 20210420
  Serious: Yes (Hospitalization, Other)
  Sender: FDA-Public Use
  Company Number: DE-ALKEM LABORATORIES LIMITED-DE-ALKEM-2020-07805

PATIENT
  Age: 79 Year
  Sex: Female

DRUGS (2)
  1. LINEZOLID. [Suspect]
     Active Substance: LINEZOLID
     Indication: INTERVERTEBRAL DISCITIS
     Dosage: 600 MG, BID
     Route: 048
  2. LINEZOLID. [Suspect]
     Active Substance: LINEZOLID
     Dosage: 300 MG, Q12H
     Route: 048

REACTIONS (4)
  - Leukopenia [Unknown]
  - Anaemia [Unknown]
  - Thrombocytopenia [Recovered/Resolved]
  - Off label use [Unknown]
